FAERS Safety Report 8607276-5 (Version None)
Quarter: 2012Q3

REPORT INFORMATION
  Report Type: 
  Country: None (occurrence: None)
  Receive Date: 20120807
  Receipt Date: 20120727
  Transmission Date: 20120928
  Serious: Yes (Hospitalization, Disabling)
  Sender: FDA-Public Use
  Company Number: AUR-APL-2012-03109

PATIENT
  Age: 57 Year
  Sex: Male
  Weight: 107 kg

DRUGS (9)
  1. FUROSEMIDE [Concomitant]
  2. AMLODIPINE [Concomitant]
  3. IBUMETIN (IBURPROFEN) [Concomitant]
  4. LOSARTAN POTASSIUM [Concomitant]
  5. LANSOPRAZOLE [Concomitant]
  6. MOXONIDIN (MOXONIDINE) [Concomitant]
  7. SIMVASTATIN [Suspect]
     Indication: HYPERCHOLESTEROLAEMIA
     Dosage: 40 MG (40 MG,1 IN 1 D),ORAL
     Route: 048
     Dates: start: 20040101, end: 20090301
  8. POTASSIUM CHLORIDE [Concomitant]
  9. CARVEDILOL [Concomitant]

REACTIONS (5)
  - ARTHRALGIA [None]
  - MYALGIA [None]
  - OEDEMA PERIPHERAL [None]
  - GOUT [None]
  - PAIN IN EXTREMITY [None]
